FAERS Safety Report 6869360-6 (Version None)
Quarter: 2010Q3

REPORT INFORMATION
  Report Type: 
  Country: None (occurrence: None)
  Receive Date: 20100722
  Receipt Date: 20100722
  Transmission Date: 20110219
  Serious: Yes (Life-Threatening, Other)
  Sender: FDA-Public Use
  Company Number: None

PATIENT
  Age: 73 Year
  Sex: Male
  Weight: 108.8633 kg

DRUGS (2)
  1. WARFARIN SODIUM [Suspect]
     Indication: ATRIAL FIBRILLATION
     Dosage: 5MG 1X VARIOUS
  2. WARFARIN SODIUM [Suspect]
     Indication: COAGULOPATHY
     Dosage: 5MG 1X VARIOUS

REACTIONS (2)
  - PRODUCT QUALITY ISSUE [None]
  - PROTHROMBIN TIME PROLONGED [None]
